FAERS Safety Report 9562057 (Version 1)
Quarter: 2013Q3

REPORT INFORMATION
  Report Type: Spontaneous
  Country: US (occurrence: US)
  Receive Date: 20130927
  Receipt Date: 20130927
  Transmission Date: 20140515
  Serious: Yes (Other)
  Sender: FDA-Public Use
  Company Number: US-PFIZER INC-2013275992

PATIENT
  Age: 64 Year
  Sex: Female
  Weight: 81.63 kg

DRUGS (12)
  1. LYRICA [Suspect]
     Indication: POST HERPETIC NEURALGIA
     Dosage: 25 MG, 4X/DAY
     Route: 048
     Dates: start: 201302, end: 2013
  2. LYRICA [Suspect]
     Dosage: 100 MG, 3X/DAY
     Route: 048
     Dates: start: 2013, end: 2013
  3. LYRICA [Suspect]
     Dosage: 200 MG, 3X/DAY
     Route: 048
     Dates: start: 2013, end: 2013
  4. LYRICA [Suspect]
     Dosage: 300 MG, 4X/DAY
     Route: 048
     Dates: start: 2013, end: 2013
  5. LYRICA [Suspect]
     Dosage: 300 MG, 2X/DAY
  6. LYRICA [Suspect]
     Dosage: 100 MG, 2X/DAY
     Route: 048
     Dates: start: 2013, end: 2013
  7. LYRICA [Suspect]
     Dosage: 200 MG, 1X/DAY
     Route: 048
     Dates: start: 2013
  8. LEVOTHYROXINE [Concomitant]
     Indication: HYPOTHYROIDISM
     Dosage: UNK
  9. BENICAR [Concomitant]
     Indication: HYPERTENSION
     Dosage: UNK
  10. METFORMIN [Concomitant]
     Indication: GLUCOSE TOLERANCE IMPAIRED
     Dosage: UNK
  11. ATORVASTATIN [Concomitant]
     Indication: BLOOD CHOLESTEROL INCREASED
     Dosage: UNK
  12. ZOLPIDEM [Concomitant]
     Dosage: UNK

REACTIONS (10)
  - Off label use [Unknown]
  - Vitreous adhesions [Unknown]
  - Visual impairment [Unknown]
  - Anaemia [Unknown]
  - Overdose [Unknown]
  - Vision blurred [Recovered/Resolved]
  - Dizziness [Recovered/Resolved]
  - Drug ineffective [Unknown]
  - Pain [Unknown]
  - Drug effect delayed [Unknown]
